FAERS Safety Report 13788207 (Version 1)
Quarter: 2017Q3

REPORT INFORMATION
  Report Type: Spontaneous
  Country: US (occurrence: US)
  Receive Date: 20170725
  Receipt Date: 20170725
  Transmission Date: 20171127
  Serious: No
  Sender: FDA-Public Use
  Company Number: US-JNJFOC-20170527192

PATIENT
  Age: 63 Year
  Sex: Male

DRUGS (6)
  1. IMBRUVICA [Suspect]
     Active Substance: IBRUTINIB
     Indication: CHRONIC LYMPHOCYTIC LEUKAEMIA
     Route: 048
     Dates: start: 20161230
  2. POTASSIUM CHLORIDE. [Concomitant]
     Active Substance: POTASSIUM CHLORIDE
  3. PROSCAR [Concomitant]
     Active Substance: FINASTERIDE
  4. AMBIEN [Concomitant]
     Active Substance: ZOLPIDEM TARTRATE
  5. RANITIDINE. [Concomitant]
     Active Substance: RANITIDINE
  6. AMIODARONE [Concomitant]
     Active Substance: AMIODARONE

REACTIONS (4)
  - Off label use [Not Recovered/Not Resolved]
  - Urticaria [Unknown]
  - Incorrect dose administered [Not Recovered/Not Resolved]
  - Pruritus [Unknown]

NARRATIVE: CASE EVENT DATE: 20161230
